FAERS Safety Report 12633644 (Version 6)
Quarter: 2017Q1

REPORT INFORMATION
  Report Type: Spontaneous
  Country: US (occurrence: US)
  Receive Date: 20160808
  Receipt Date: 20170309
  Transmission Date: 20170428
  Serious: Yes (Hospitalization)
  Sender: FDA-Public Use
  Company Number: US-PFIZER INC-2016361282

PATIENT
  Age: 103 Year
  Sex: Female
  Weight: 64.41 kg

DRUGS (3)
  1. IBRANCE [Suspect]
     Active Substance: PALBOCICLIB
     Dosage: 75 MG, CYCLIC, (DAYS 1-21 Q28 DAYS)
     Route: 048
     Dates: start: 20160508
  2. IBRANCE [Suspect]
     Active Substance: PALBOCICLIB
     Indication: BREAST CANCER METASTATIC
     Dosage: 100 MG, CYCLIC (D1-D21 Q28D)
     Route: 048
     Dates: start: 20160508
  3. IBRANCE [Suspect]
     Active Substance: PALBOCICLIB
     Dosage: 75 MG, CYCLIC (1D-21D Q 28D)
     Route: 048
     Dates: start: 20160531

REACTIONS (10)
  - Joint swelling [Unknown]
  - Alopecia [Unknown]
  - Blood pressure abnormal [Unknown]
  - Nail discolouration [Unknown]
  - Fatigue [Unknown]
  - Nasopharyngitis [Unknown]
  - Asthenia [Unknown]
  - Neutropenia [Unknown]
  - Peripheral swelling [Unknown]
  - Pneumonia [Unknown]

NARRATIVE: CASE EVENT DATE: 201607
